FAERS Safety Report 17304700 (Version 2)
Quarter: 2020Q1

REPORT INFORMATION
  Report Type: Report from Study
  Country: None (occurrence: FR)
  Receive Date: 20200122
  Receipt Date: 20200308
  Transmission Date: 20200409
  Serious: Yes (Hospitalization, Other)
  Sender: FDA-Public Use
  Company Number: FR-ABBVIE-20K-056-3233401-00

PATIENT
  Age: 71 Year
  Sex: Male

DRUGS (6)
  1. CLOZAPINE. [Concomitant]
     Active Substance: CLOZAPINE
     Indication: PRODUCT USED FOR UNKNOWN INDICATION
     Dosage: EVERY EVENING
  2. CLOZAPINE. [Concomitant]
     Active Substance: CLOZAPINE
  3. SERESTA [Concomitant]
     Active Substance: OXAZEPAM
     Indication: PRODUCT USED FOR UNKNOWN INDICATION
     Dosage: EVERY EVENING
  4. DUODOPA [Suspect]
     Active Substance: CARBIDOPA\LEVODOPA
     Indication: PARKINSON^S DISEASE
     Dosage: CD: 3.8ML/HR, MD: 16ML AND ED: 3ML
     Route: 050
     Dates: start: 201811
  5. DUODOPA [Suspect]
     Active Substance: CARBIDOPA\LEVODOPA
     Dosage: CD: 3.5ML/HR
     Route: 050
     Dates: end: 20200111
  6. DUODOPA [Suspect]
     Active Substance: CARBIDOPA\LEVODOPA
     Dosage: CONTINUOUS FLOWS RATE DURING THE DAY : 2.6ML/H / EXTRA DOSE : 3ML
     Route: 050
     Dates: start: 2020

REACTIONS (13)
  - Stoma site inflammation [Not Recovered/Not Resolved]
  - Abnormal behaviour [Unknown]
  - Dysarthria [Not Recovered/Not Resolved]
  - Poor quality sleep [Not Recovered/Not Resolved]
  - Tremor [Not Recovered/Not Resolved]
  - Stoma site hypergranulation [Not Recovered/Not Resolved]
  - Aggression [Unknown]
  - Obstruction [Not Recovered/Not Resolved]
  - Salivary hypersecretion [Not Recovered/Not Resolved]
  - Nightmare [Not Recovered/Not Resolved]
  - Delirium [Unknown]
  - Pain in extremity [Not Recovered/Not Resolved]
  - Delusional disorder, unspecified type [Unknown]

NARRATIVE: CASE EVENT DATE: 20200110
